FAERS Safety Report 11886747 (Version 1)
Quarter: 2016Q1

REPORT INFORMATION
  Report Type: Spontaneous
  Country: GB (occurrence: GB)
  Receive Date: 20160104
  Receipt Date: 20160104
  Transmission Date: 20160526
  Serious: Yes (Death, Hospitalization)
  Sender: FDA-Public Use
  Company Number: GB-PFIZER INC-2015478347

PATIENT
  Age: 95 Year
  Sex: Female

DRUGS (5)
  1. CALCICHEW D3 [Concomitant]
     Active Substance: CALCIUM\CHOLECALCIFEROL
     Dosage: UNK
  2. ALENDRONIC ACID [Concomitant]
     Active Substance: ALENDRONIC ACID
  3. CLOPIDOGREL [Concomitant]
     Active Substance: CLOPIDOGREL BISULFATE
  4. EXEMESTANE. [Suspect]
     Active Substance: EXEMESTANE
     Indication: BREAST CANCER
     Dosage: UNK
     Dates: start: 20150909
  5. CANDESARTAN [Concomitant]
     Active Substance: CANDESARTAN

REACTIONS (5)
  - Lower respiratory tract infection [Fatal]
  - Breast cancer [Fatal]
  - Malaise [Not Recovered/Not Resolved]
  - Dyspnoea [Not Recovered/Not Resolved]
  - Disease progression [Fatal]
